FAERS Safety Report 17688307 (Version 1)
Quarter: 2020Q2

REPORT INFORMATION
  Report Type: Spontaneous
  Country: CH (occurrence: CH)
  Receive Date: 20200421
  Receipt Date: 20200421
  Transmission Date: 20200714
  Serious: Yes (Hospitalization, Other)
  Sender: FDA-Public Use
  Company Number: CH-009507513-2004CHE004585

PATIENT
  Sex: Female
  Weight: 47 kg

DRUGS (3)
  1. KEYTRUDA [Suspect]
     Active Substance: PEMBROLIZUMAB
     Indication: METASTATIC RENAL CELL CARCINOMA
     Dosage: 200 MG CYCLICAL
     Dates: start: 20200213
  2. AXITINIB [Suspect]
     Active Substance: AXITINIB
     Indication: METASTATIC RENAL CELL CARCINOMA
     Dosage: UNK, CYCLICAL
     Dates: start: 20200213
  3. NOVALGIN (DIPYRONE) [Suspect]
     Active Substance: DIPYRONE
     Indication: PAIN
     Dosage: 2000 MILLIGRAM, QD
     Route: 048
     Dates: start: 20200121, end: 20200305

REACTIONS (2)
  - Pyrexia [Recovered/Resolved]
  - B-cell aplasia [Recovered/Resolved]

NARRATIVE: CASE EVENT DATE: 20200305
